FAERS Safety Report 26069300 (Version 1)
Quarter: 2025Q4

REPORT INFORMATION
  Report Type: Spontaneous
  Country: US (occurrence: None)
  Receive Date: 20251119
  Receipt Date: 20251119
  Transmission Date: 20260118
  Serious: Yes (Death)
  Sender: FDA-CTU
  Company Number: None

PATIENT
  Age: 72 Year
  Sex: Female

DRUGS (12)
  1. TACROLIMUS [Suspect]
     Active Substance: TACROLIMUS
     Dosage: FREQUENCY : TWICE A DAY;?
     Route: 048
  2. ASPIRIN [Concomitant]
     Active Substance: ASPIRIN
  3. Nicotinamide tablets [Concomitant]
  4. OMEPRAZOLE [Concomitant]
     Active Substance: OMEPRAZOLE
  5. Vitamin K2 100 mcg [Concomitant]
  6. Vitamin D3 1000 units [Concomitant]
  7. Vitamin B12 1000 mcg [Concomitant]
  8. ATENOLOL [Concomitant]
     Active Substance: ATENOLOL
  9. Garlic 1000 mg [Concomitant]
  10. LEVOTHYROXINE [Concomitant]
     Active Substance: LEVOTHYROXINE
  11. LIOTHYRONINE [Concomitant]
     Active Substance: LIOTHYRONINE
  12. Mag-oxide 400 mg [Concomitant]

REACTIONS (1)
  - Death [None]
